FAERS Safety Report 8774101 (Version 1)
Quarter: 2012Q4

REPORT INFORMATION
  Report Type: Report from Study
  Country: CA (occurrence: CA)
  Receive Date: 20120907
  Receipt Date: 20120907
  Transmission Date: 20130627
  Serious: Yes (Hospitalization)
  Sender: FDA-Public Use
  Company Number: CA-JNJFOC-20120813297

PATIENT
  Age: 37 Year
  Sex: Male
  Weight: 89 kg

DRUGS (5)
  1. REMICADE [Suspect]
     Indication: CROHN^S DISEASE
     Route: 042
     Dates: start: 20120412
  2. IMURAN [Concomitant]
     Route: 065
     Dates: end: 20120813
  3. METFORMIN [Concomitant]
     Route: 065
     Dates: end: 20120813
  4. GLICLAZIDE [Concomitant]
     Route: 048
     Dates: start: 20120813
  5. LOSEC [Concomitant]
     Route: 048
     Dates: start: 20120813

REACTIONS (2)
  - Abdominal pain upper [Recovering/Resolving]
  - Abdominal discomfort [Recovering/Resolving]
